FAERS Safety Report 16843353 (Version 2)
Quarter: 2020Q1

REPORT INFORMATION
  Report Type: Report from Study
  Country: US (occurrence: US)
  Receive Date: 20190924
  Receipt Date: 20200102
  Transmission Date: 20200409
  Serious: Yes (Other)
  Sender: FDA-Public Use
  Company Number: PHEH2019US039156

PATIENT
  Age: 72 Year
  Sex: Female
  Weight: 62.6 kg

DRUGS (3)
  1. ACETAMINOPHEN. [Concomitant]
     Active Substance: ACETAMINOPHEN
     Indication: PRODUCT USED FOR UNKNOWN INDICATION
     Route: 065
  2. ENTRESTO [Suspect]
     Active Substance: SACUBITRIL\VALSARTAN
     Dosage: 24MG SACUBITRIL/26MG VALSARTAN, BID
     Route: 048
  3. ENTRESTO [Suspect]
     Active Substance: SACUBITRIL\VALSARTAN
     Indication: CARDIAC FAILURE CHRONIC
     Dosage: 24MG SACUBITRIL/26MG VALSARTAN, BID
     Route: 048
     Dates: start: 20180928, end: 20190321

REACTIONS (5)
  - Hypokalaemia [Unknown]
  - Hepatic enzyme increased [Unknown]
  - Renal disorder [Unknown]
  - Lethargy [Unknown]
  - Oedema [Unknown]

NARRATIVE: CASE EVENT DATE: 20190320
